FAERS Safety Report 4847655-5 (Version None)
Quarter: 2005Q4

REPORT INFORMATION
  Report Type: 
  Country: None (occurrence: None)
  Receive Date: 20051205
  Receipt Date: 20051121
  Transmission Date: 20060501
  Serious: Yes (Hospitalization)
  Sender: FDA-Public Use
  Company Number: 2005135169

PATIENT
  Age: 56 Year
  Sex: Male

DRUGS (2)
  1. ATORVASTATIN CALCIUM [Suspect]
     Indication: HYPERCHOLESTEROLAEMIA
     Dosage: 10 MG (1 IN 1 D),
     Dates: start: 20000101
  2. ANTIBIOTICS (ANTIBIOTICS) [Suspect]
     Indication: SEPSIS
     Dates: start: 20050101

REACTIONS (3)
  - CATHETER RELATED INFECTION [None]
  - PANCREATITIS ACUTE [None]
  - STAPHYLOCOCCAL SEPSIS [None]
